FAERS Safety Report 7354009-9 (Version None)
Quarter: 2011Q1

REPORT INFORMATION
  Report Type: 
  Country: None (occurrence: None)
  Receive Date: 20110315
  Receipt Date: 20110308
  Transmission Date: 20110831
  Serious: Yes (Life-Threatening, Other)
  Sender: FDA-Public Use
  Company Number: PHHY2011CA19142

PATIENT
  Sex: Female

DRUGS (5)
  1. ASPIRIN [Concomitant]
  2. VENTOLIN [Concomitant]
  3. ACLASTA [Suspect]
     Indication: OSTEOPOROSIS
     Dosage: 5 MG/100 ML ONCE PER YEAR
     Route: 042
     Dates: start: 20110118
  4. ACLASTA [Suspect]
     Indication: STRESS FRACTURE
  5. PARIET [Concomitant]

REACTIONS (5)
  - HEART RATE DECREASED [None]
  - PAIN IN EXTREMITY [None]
  - FEELING ABNORMAL [None]
  - CHEST PAIN [None]
  - MYALGIA [None]
